FAERS Safety Report 14562695 (Version 2)
Quarter: 2018Q2

REPORT INFORMATION
  Report Type: Report from Study
  Country: None (occurrence: GB)
  Receive Date: 20180222
  Receipt Date: 20180406
  Transmission Date: 20180711
  Serious: Yes (Other)
  Sender: FDA-Public Use
  Company Number: GB-BIOVITRUM-2018GB0158

PATIENT
  Sex: Male

DRUGS (4)
  1. ORFADIN [Suspect]
     Active Substance: NITISINONE
     Dates: start: 20160120, end: 20160710
  2. ORFADIN [Suspect]
     Active Substance: NITISINONE
     Dates: start: 20180108
  3. ORFADIN [Suspect]
     Active Substance: NITISINONE
     Indication: TYROSINAEMIA
     Dates: start: 20161107, end: 20170710
  4. ORFADIN [Suspect]
     Active Substance: NITISINONE
     Dates: start: 20170710, end: 20180108

REACTIONS (5)
  - Succinylacetone increased [Unknown]
  - Alpha 1 foetoprotein increased [Unknown]
  - Amino acid level decreased [Unknown]
  - Drug level decreased [Recovering/Resolving]
  - Incorrect dose administered [Recovering/Resolving]
